FAERS Safety Report 19198128 (Version 8)
Quarter: 2021Q3

REPORT INFORMATION
  Report Type: Spontaneous
  Country: US (occurrence: US)
  Receive Date: 20210430
  Receipt Date: 20210714
  Transmission Date: 20211014
  Serious: Yes (Other)
  Sender: FDA-Public Use
  Company Number: US-PHARMING-PHAUS2021000220

PATIENT

DRUGS (20)
  1. EPINEPHRINE. [Concomitant]
     Active Substance: EPINEPHRINE
     Indication: PRODUCT USED FOR UNKNOWN INDICATION
  2. COLCHICINE. [Concomitant]
     Active Substance: COLCHICINE
     Indication: PRODUCT USED FOR UNKNOWN INDICATION
  3. CLONAZEPAM. [Concomitant]
     Active Substance: CLONAZEPAM
     Indication: PRODUCT USED FOR UNKNOWN INDICATION
  4. PYRIDOSTIGMINE [Concomitant]
     Active Substance: PYRIDOSTIGMINE
     Indication: PRODUCT USED FOR UNKNOWN INDICATION
  5. HEPARIN [Concomitant]
     Active Substance: HEPARIN SODIUM
     Indication: PRODUCT USED FOR UNKNOWN INDICATION
  6. XYZAL [Concomitant]
     Active Substance: LEVOCETIRIZINE DIHYDROCHLORIDE
     Indication: PRODUCT USED FOR UNKNOWN INDICATION
  7. DIPHENHYDRAMINE. [Concomitant]
     Active Substance: DIPHENHYDRAMINE
     Indication: PRODUCT USED FOR UNKNOWN INDICATION
  8. LACTATED RINGERS SOLUTION [Concomitant]
     Active Substance: CALCIUM CHLORIDE\POTASSIUM CHLORIDE\SODIUM CHLORIDE\SODIUM LACTATE
     Indication: PRODUCT USED FOR UNKNOWN INDICATION
  9. ADDERALL [Concomitant]
     Active Substance: AMPHETAMINE ASPARTATE\AMPHETAMINE SULFATE\DEXTROAMPHETAMINE SACCHARATE\DEXTROAMPHETAMINE SULFATE
     Indication: PRODUCT USED FOR UNKNOWN INDICATION
  10. IMITREX [Concomitant]
     Active Substance: SUMATRIPTAN SUCCINATE
     Indication: PRODUCT USED FOR UNKNOWN INDICATION
  11. PLAQUENIL                          /00072602/ [Concomitant]
     Active Substance: HYDROXYCHLOROQUINE DIPHOSPHATE
     Indication: PRODUCT USED FOR UNKNOWN INDICATION
  12. FAMOTIDINE. [Concomitant]
     Active Substance: FAMOTIDINE
     Indication: PRODUCT USED FOR UNKNOWN INDICATION
  13. RUCONEST [Suspect]
     Active Substance: HUMAN C1-ESTERASE INHIBITOR
     Indication: HEREDITARY ANGIOEDEMA
     Dosage: 4200 IU, EVERY THREE DAYS
     Route: 042
     Dates: start: 20210408
  14. K PHOS NEUTRAL [Concomitant]
     Active Substance: POTASSIUM PHOSPHATE, MONOBASIC\SODIUM PHOSPHATE, DIBASIC, ANHYDROUS\SODIUM PHOSPHATE, MONOBASIC, MONOHYDRATE
     Indication: PRODUCT USED FOR UNKNOWN INDICATION
  15. LORAZEPAM. [Concomitant]
     Active Substance: LORAZEPAM
     Indication: PRODUCT USED FOR UNKNOWN INDICATION
  16. RITUXAN [Concomitant]
     Active Substance: RITUXIMAB
     Indication: PRODUCT USED FOR UNKNOWN INDICATION
  17. ZOFRAN [Concomitant]
     Active Substance: ONDANSETRON HYDROCHLORIDE
     Indication: PRODUCT USED FOR UNKNOWN INDICATION
  18. CINRYZE [Concomitant]
     Active Substance: HUMAN C1-ESTERASE INHIBITOR
     Indication: PRODUCT USED FOR UNKNOWN INDICATION
  19. AYGESTIN [Concomitant]
     Active Substance: NORETHINDRONE ACETATE
     Indication: PRODUCT USED FOR UNKNOWN INDICATION
  20. PREDNISONE. [Concomitant]
     Active Substance: PREDNISONE
     Indication: PRODUCT USED FOR UNKNOWN INDICATION

REACTIONS (17)
  - Urinary retention [Unknown]
  - Vomiting [Unknown]
  - Vitamin C deficiency [Unknown]
  - Headache [Unknown]
  - Pharyngeal swelling [Unknown]
  - Eye injury [Unknown]
  - Sinusitis [Unknown]
  - Alopecia [Unknown]
  - Intentional product use issue [Unknown]
  - Haematemesis [Unknown]
  - Contusion [Unknown]
  - Condition aggravated [Unknown]
  - Tooth loss [Unknown]
  - Fall [Unknown]
  - Head injury [Unknown]
  - Muscular weakness [Unknown]
  - Fluid retention [Unknown]

NARRATIVE: CASE EVENT DATE: 202104
